FAERS Safety Report 14813657 (Version 1)
Quarter: 2018Q2

REPORT INFORMATION
  Report Type: Spontaneous
  Country: GB (occurrence: GB)
  Receive Date: 20180426
  Receipt Date: 20180426
  Transmission Date: 20180711
  Serious: Yes (Other)
  Sender: FDA-Public Use
  Company Number: GB-CIPLA LTD.-2018GB16497

PATIENT

DRUGS (6)
  1. LEVETIRACETAM. [Suspect]
     Active Substance: LEVETIRACETAM
     Indication: MIGRAINE
     Dosage: 250 MG, PER DAY, AT NIGHT
     Route: 048
     Dates: start: 20180228
  2. DIETARY SUPPLEMENT [Concomitant]
     Active Substance: DIETARY SUPPLEMENT
     Indication: MIGRAINE
     Dosage: UNK
     Route: 065
  3. LIZINNA [Concomitant]
     Indication: PRODUCT USED FOR UNKNOWN INDICATION
     Dosage: UNK
     Route: 065
  4. CILEST [Concomitant]
     Active Substance: ETHINYL ESTRADIOL\NORGESTIMATE
     Indication: PRODUCT USED FOR UNKNOWN INDICATION
     Dosage: ()
  5. LEVETIRACETAM. [Suspect]
     Active Substance: LEVETIRACETAM
     Dosage: 500 MG, PER DAY (250MG MORNING AND NIGHT)
     Route: 048
     Dates: start: 20180309, end: 20180315
  6. ESOMEPRAZOLE MAGNESIUM. [Concomitant]
     Active Substance: ESOMEPRAZOLE MAGNESIUM
     Indication: PRODUCT USED FOR UNKNOWN INDICATION
     Dosage: ()
     Route: 065

REACTIONS (12)
  - Muscular weakness [Unknown]
  - Dizziness [Unknown]
  - Suicidal ideation [Unknown]
  - Restless legs syndrome [Recovered/Resolved]
  - Anger [Unknown]
  - Hypermobility syndrome [Unknown]
  - Joint laxity [Unknown]
  - Feeling drunk [Unknown]
  - Oropharyngeal pain [Unknown]
  - Mood swings [Unknown]
  - Condition aggravated [Unknown]
  - Somnolence [Unknown]

NARRATIVE: CASE EVENT DATE: 20180228
